FAERS Safety Report 17536288 (Version 1)
Quarter: 2020Q1

REPORT INFORMATION
  Report Type: Spontaneous
  Country: US (occurrence: US)
  Receive Date: 20200313
  Receipt Date: 20200313
  Transmission Date: 20200409
  Serious: No
  Sender: FDA-Public Use
  Company Number: US-IPSEN BIOPHARMACEUTICALS, INC.-2020-04949

PATIENT
  Sex: Female

DRUGS (4)
  1. SOMATULINE DEPOT [Suspect]
     Active Substance: LANREOTIDE ACETATE
     Indication: LUNG NEOPLASM MALIGNANT
     Route: 058
  2. SOMATULINE DEPOT [Suspect]
     Active Substance: LANREOTIDE ACETATE
     Indication: OFF LABEL USE
  3. TYLENOL EXTRA STRENGTH [Concomitant]
     Active Substance: ACETAMINOPHEN
  4. TAGRISSO [Concomitant]
     Active Substance: OSIMERTINIB

REACTIONS (2)
  - Periorbital oedema [Unknown]
  - Off label use [Unknown]
